FAERS Safety Report 12531450 (Version 1)
Quarter: 2016Q3

REPORT INFORMATION
  Report Type: Spontaneous
  Country: US (occurrence: US)
  Receive Date: 20160706
  Receipt Date: 20160706
  Transmission Date: 20161109
  Serious: No
  Sender: FDA-Public Use
  Company Number: US-MALLINCKRODT-T201600507

PATIENT
  Sex: Male

DRUGS (1)
  1. OXYCODONE [Suspect]
     Active Substance: OXYCODONE
     Indication: PAIN
     Dosage: 30 MG, 1 TO 2 TABLETS EVER 4-6 HOURS
     Route: 065
     Dates: start: 20160101

REACTIONS (4)
  - Blood glucose fluctuation [Recovering/Resolving]
  - Drug ineffective [Recovered/Resolved]
  - Stress [Recovering/Resolving]
  - Drug withdrawal syndrome [Recovering/Resolving]

NARRATIVE: CASE EVENT DATE: 20160101
